FAERS Safety Report 6604569-8 (Version None)
Quarter: 2010Q1

REPORT INFORMATION
  Report Type: 
  Country: None (occurrence: None)
  Receive Date: 20100226
  Receipt Date: 20091202
  Transmission Date: 20100710
  Serious: No
  Sender: FDA-Public Use
  Company Number: A0832886A

PATIENT
  Age: 30 Year
  Sex: Female

DRUGS (2)
  1. LAMICTAL CD [Suspect]
     Indication: EPILEPSY
     Dosage: 25MG UNKNOWN
     Route: 048
  2. DILANTIN [Concomitant]

REACTIONS (1)
  - VISION BLURRED [None]
